FAERS Safety Report 8978398 (Version 1)
Quarter: 2012Q4

REPORT INFORMATION
  Report Type: 
  Country: US (occurrence: US)
  Receive Date: 20121220
  Receipt Date: 20121220
  Transmission Date: 20130627
  Serious: Yes (Hospitalization)
  Sender: FDA-Public Use
  Company Number: US-PFIZER INC-2012323849

PATIENT
  Age: 79 Year
  Sex: Female
  Weight: 46.71 kg

DRUGS (2)
  1. LYRICA [Suspect]
     Indication: ARTHRITIC PAINS
     Dosage: 75 mg, 3x/day
  2. PROTONIX [Concomitant]
     Indication: GASTRIC DISORDER
     Dosage: 40 mg, 2x/day

REACTIONS (2)
  - Pneumonia [Unknown]
  - Stent placement [Unknown]
